FAERS Safety Report 10294669 (Version 2)
Quarter: 2015Q3

REPORT INFORMATION
  Report Type: Spontaneous
  Country: US (occurrence: US)
  Receive Date: 20140710
  Receipt Date: 20150709
  Transmission Date: 20151125
  Serious: No
  Sender: FDA-Public Use
  Company Number: US-PURDUE-USA-2014-0112444

PATIENT
  Sex: Female
  Weight: 73.92 kg

DRUGS (2)
  1. BUTRANS [Suspect]
     Active Substance: BUPRENORPHINE
     Indication: PAIN
     Dosage: 15 MCG/HR, UNK
     Route: 062
     Dates: start: 20121210
  2. BUTRANS [Suspect]
     Active Substance: BUPRENORPHINE
     Indication: BURSITIS
     Dosage: 15 MCG/HR, WEEKLY
     Route: 062
     Dates: start: 201311

REACTIONS (10)
  - Application site odour [Unknown]
  - Application site inflammation [Recovered/Resolved]
  - Application site pruritus [Recovered/Resolved]
  - Application site discharge [Unknown]
  - Application site burn [Recovered/Resolved]
  - Product adhesion issue [Unknown]
  - Application site swelling [Recovered/Resolved]
  - Application site discolouration [Recovered/Resolved]
  - Application site pain [Recovered/Resolved]
  - Wrong technique in product usage process [Unknown]
